FAERS Safety Report 12473709 (Version 1)
Quarter: 2016Q2

REPORT INFORMATION
  Report Type: Spontaneous
  Country: US (occurrence: US)
  Receive Date: 20160616
  Receipt Date: 20160616
  Transmission Date: 20160815
  Serious: No
  Sender: FDA-Public Use
  Company Number: US-TARO-2016TAR00333

PATIENT
  Age: 2 Year
  Sex: Male

DRUGS (1)
  1. CETIRIZINE HCL [Suspect]
     Active Substance: CETIRIZINE HYDROCHLORIDE
     Indication: NASOPHARYNGITIS
     Dosage: UNK, ONCE
     Dates: end: 20160413

REACTIONS (2)
  - Somnolence [Recovered/Resolved]
  - Off label use [Unknown]

NARRATIVE: CASE EVENT DATE: 20160413
